FAERS Safety Report 10723109 (Version 1)
Quarter: 2015Q1

REPORT INFORMATION
  Report Type: Spontaneous
  Country: JP (occurrence: JP)
  Receive Date: 20150120
  Receipt Date: 20150120
  Transmission Date: 20150721
  Serious: No
  Sender: FDA-Public Use
  Company Number: PHHY2015JP004543

PATIENT
  Age: 82 Year
  Sex: Male

DRUGS (2)
  1. TASIGNA [Suspect]
     Active Substance: NILOTINIB
     Indication: CHRONIC MYELOID LEUKAEMIA
     Dosage: BID
     Route: 048
     Dates: start: 201410
  2. TASIGNA [Suspect]
     Active Substance: NILOTINIB
     Dosage: QD
     Route: 048

REACTIONS (4)
  - Nasopharyngitis [Unknown]
  - Constipation [Unknown]
  - Myalgia [Unknown]
  - Hepatic function abnormal [Unknown]
